FAERS Safety Report 21796277 (Version 2)
Quarter: 2023Q4

REPORT INFORMATION
  Report Type: Report from Study
  Country: JP (occurrence: JP)
  Receive Date: 20221229
  Receipt Date: 20231021
  Transmission Date: 20240110
  Serious: Yes (Hospitalization, Other)
  Sender: FDA-Public Use
  Company Number: JP-RPC01-3103-1121004-20201013-0001SG

PATIENT
  Age: 54 Year
  Sex: Female
  Weight: 72 kg

DRUGS (5)
  1. OZANIMOD [Suspect]
     Active Substance: OZANIMOD
     Indication: Colitis
     Route: 048
     Dates: start: 20190801, end: 20190804
  2. ATORVASTATIN CALCIUM [Concomitant]
     Active Substance: ATORVASTATIN CALCIUM
     Indication: Hypercholesterolaemia
     Dosage: 5 MG X 1 X 1 DAYS
     Route: 048
     Dates: start: 20190109
  3. BIASTINE [Concomitant]
     Indication: Seasonal allergy
     Dosage: MG X 1 X 1 DAYS
     Route: 048
     Dates: start: 20190320
  4. MESALAMINE [Concomitant]
     Active Substance: MESALAMINE
     Indication: Colitis ulcerative
     Dosage: 4800 MG X 1 X 1 DAYS
     Route: 048
     Dates: start: 20181117
  5. MONTELUKAST SODIUM [Concomitant]
     Active Substance: MONTELUKAST SODIUM
     Indication: Asthma
     Dosage: 10 MG X 1 X 1 DAYS
     Route: 048
     Dates: start: 20190109

REACTIONS (1)
  - Hemiplegia [Not Recovered/Not Resolved]

NARRATIVE: CASE EVENT DATE: 20201011
